FAERS Safety Report 18145578 (Version 1)
Quarter: 2020Q3

REPORT INFORMATION
  Report Type: Spontaneous
  Country: US (occurrence: US)
  Receive Date: 20200813
  Receipt Date: 20200813
  Transmission Date: 20201103
  Serious: Yes (Other)
  Sender: FDA-Public Use
  Company Number: US-GLAXOSMITHKLINE-US2020157603

PATIENT

DRUGS (2)
  1. FLONASE SENSIMIST ALLERGY RELIEF [Suspect]
     Active Substance: FLUTICASONE FUROATE
     Indication: ASTHMA
     Dosage: UNK
  2. FLONASE [Suspect]
     Active Substance: FLUTICASONE PROPIONATE
     Indication: ASTHMA
     Dosage: UNK

REACTIONS (5)
  - Drug effective for unapproved indication [Unknown]
  - Product use in unapproved indication [Unknown]
  - Contraindicated product administered [Unknown]
  - Choking [Unknown]
  - Drug ineffective for unapproved indication [Unknown]
